FAERS Safety Report 6781686-3 (Version None)
Quarter: 2010Q2

REPORT INFORMATION
  Report Type: 
  Country: None (occurrence: None)
  Receive Date: 20100621
  Receipt Date: 20100610
  Transmission Date: 20101027
  Serious: Yes (Other)
  Sender: FDA-Public Use
  Company Number: US-BAXTER-2010BH009167

PATIENT
  Age: 15 Year
  Sex: Female
  Weight: 54 kg

DRUGS (6)
  1. GAMMAGARD LIQUID [Suspect]
     Indication: IMMUNODEFICIENCY
     Route: 065
     Dates: start: 20100407, end: 20100407
  2. GAMMAGARD LIQUID [Suspect]
     Route: 065
     Dates: start: 20100407, end: 20100407
  3. GAMMAGARD LIQUID [Suspect]
     Route: 065
     Dates: start: 20081001
  4. ZITHROMAX [Concomitant]
     Indication: SINUSITIS
     Route: 048
     Dates: end: 20100405
  5. EPIPEN [Concomitant]
     Indication: HYPERSENSITIVITY
     Route: 030
     Dates: start: 20080326
  6. TYLENOL [Concomitant]
     Indication: PREMEDICATION
     Route: 048
     Dates: start: 20100407, end: 20100407

REACTIONS (4)
  - CHILLS [None]
  - HEART RATE INCREASED [None]
  - MALAISE [None]
  - PYREXIA [None]
